FAERS Safety Report 4485839-9 (Version None)
Quarter: 2004Q3

REPORT INFORMATION
  Report Type: 
  Country: None (occurrence: None)
  Receive Date: 20040921
  Receipt Date: 20031006
  Transmission Date: 20050211
  Serious: Yes (Hospitalization, Other)
  Sender: FDA-Public Use
  Company Number: 163-20785-03100185

PATIENT
  Age: 49 Year
  Sex: Male
  Weight: 109.3169 kg

DRUGS (9)
  1. THALOMID [Suspect]
     Indication: RENAL CELL CARCINOMA STAGE UNSPECIFIED
     Dosage: BID, ORAL
     Route: 048
     Dates: start: 20030723, end: 20031015
  2. DOCETAXEL            (DOCETAXEL) ( [Suspect]
     Indication: RENAL CELL CARCINOMA STAGE UNSPECIFIED
     Dosage: 58 MG, Q 7 DAYS
  3. COUMADIN [Suspect]
     Dosage: QD, ORAL
     Route: 048
  4. DEXAMETHASONE [Suspect]
     Dosage: 12 HOURS AND 30 MINUTES BEFORE
  5. ACETYLSALICYLIC ACID SRT [Concomitant]
  6. LIPITOR [Concomitant]
  7. PROTONIX [Concomitant]
  8. HYDROCHLOROTHIAZIDE [Concomitant]
  9. METOPROLOL TARTRATE [Concomitant]

REACTIONS (12)
  - ASTHENIA [None]
  - BACK PAIN [None]
  - BLOOD CREATININE INCREASED [None]
  - CHEST X-RAY ABNORMAL [None]
  - DECREASED APPETITE [None]
  - DISEASE PROGRESSION [None]
  - DIZZINESS [None]
  - ELECTROCARDIOGRAM ABNORMAL [None]
  - FATIGUE [None]
  - HAEMOGLOBIN DECREASED [None]
  - NAUSEA [None]
  - RED BLOOD CELL COUNT DECREASED [None]
